FAERS Safety Report 16564011 (Version 2)
Quarter: 2019Q3

REPORT INFORMATION
  Report Type: Spontaneous
  Country: US (occurrence: US)
  Receive Date: 20190712
  Receipt Date: 20190724
  Transmission Date: 20191004
  Serious: No
  Sender: FDA-Public Use
  Company Number: US-HORIZON-KRY-0473-2019

PATIENT
  Age: 78 Year
  Sex: Female

DRUGS (9)
  1. INDOMETHACIN. [Concomitant]
     Active Substance: INDOMETHACIN
  2. KRYSTEXXA [Suspect]
     Active Substance: PEGLOTICASE
     Indication: GOUT
  3. LEVOTHYROXINE. [Concomitant]
     Active Substance: LEVOTHYROXINE
  4. COLCHICINE. [Concomitant]
     Active Substance: COLCHICINE
  5. METOPROLOL. [Concomitant]
     Active Substance: METOPROLOL
  6. MEDROL [Concomitant]
     Active Substance: METHYLPREDNISOLONE
  7. AMLODIPINE [Concomitant]
     Active Substance: AMLODIPINE BESYLATE
  8. ASPIRIN. [Concomitant]
     Active Substance: ASPIRIN
  9. TORSEMIDE. [Concomitant]
     Active Substance: TORSEMIDE

REACTIONS (1)
  - Gout [Not Recovered/Not Resolved]
